FAERS Safety Report 15646565 (Version 3)
Quarter: 2020Q3

REPORT INFORMATION
  Report Type: Spontaneous
  Country: US (occurrence: US)
  Receive Date: 20181122
  Receipt Date: 20200703
  Transmission Date: 20201102
  Serious: Yes (Hospitalization, Other)
  Sender: FDA-Public Use
  Company Number: US-BRISTOL-MYERS SQUIBB COMPANY-BMS-2018-107431

PATIENT
  Sex: Female
  Weight: 89.34 kg

DRUGS (1)
  1. OPDIVO [Suspect]
     Active Substance: NIVOLUMAB
     Indication: CERVIX CARCINOMA
     Dosage: UNK, Q2WK
     Route: 042

REACTIONS (2)
  - Gastrointestinal haemorrhage [Unknown]
  - Intentional product use issue [Unknown]
